FAERS Safety Report 6574148-X (Version None)
Quarter: 2010Q1

REPORT INFORMATION
  Report Type: 
  Country: None (occurrence: None)
  Receive Date: 20100208
  Receipt Date: 20100125
  Transmission Date: 20100710
  Serious: Yes (Death)
  Sender: FDA-Public Use
  Company Number: JP-ROCHE-681895

PATIENT
  Sex: Female

DRUGS (18)
  1. TOCILIZUMAB [Suspect]
     Indication: RHEUMATOID ARTHRITIS
     Route: 041
     Dates: start: 20080708, end: 20080708
  2. TOCILIZUMAB [Suspect]
     Route: 041
     Dates: start: 20080805, end: 20080805
  3. TOCILIZUMAB [Suspect]
     Route: 041
     Dates: start: 20080902, end: 20080902
  4. PREDNISOLONE [Suspect]
     Indication: RHEUMATOID ARTHRITIS
     Route: 048
     Dates: end: 20080101
  5. PREDNISOLONE [Suspect]
     Route: 048
     Dates: start: 20081001, end: 20081208
  6. LOXONIN [Concomitant]
     Route: 048
     Dates: end: 20081208
  7. MUCOSTA [Concomitant]
     Route: 048
     Dates: end: 20081208
  8. SELBEX [Concomitant]
     Route: 048
     Dates: end: 20081208
  9. ALFAROL [Concomitant]
     Route: 048
     Dates: end: 20081208
  10. CALCIUM ASPARTATE [Concomitant]
     Dosage: ASPARA-CA (CALCIUM L-ASPARTATE)
     Route: 048
     Dates: end: 20081208
  11. BENET [Concomitant]
     Route: 048
     Dates: end: 20081208
  12. GASTER [Concomitant]
     Route: 048
     Dates: end: 20081208
  13. AMLODIPINE [Concomitant]
     Route: 048
     Dates: end: 20081208
  14. BLOPRESS [Concomitant]
     Route: 048
     Dates: end: 20081208
  15. FERROMIA [Concomitant]
     Route: 048
     Dates: end: 20081208
  16. CLEANAL [Concomitant]
     Route: 048
     Dates: end: 20081208
  17. ISODINE [Concomitant]
     Dosage: DOSE FORM: GARGLE, ROUTE: OROPHARINGEAL
     Route: 048
     Dates: end: 20081208
  18. AZULFIDINE [Concomitant]
     Route: 048
     Dates: start: 20081001, end: 20081208

REACTIONS (1)
  - DEATH [None]
